FAERS Safety Report 23847941 (Version 5)
Quarter: 2024Q3

REPORT INFORMATION
  Report Type: Spontaneous
  Country: ES (occurrence: ES)
  Receive Date: 20240513
  Receipt Date: 20240712
  Transmission Date: 20241017
  Serious: Yes (Death, Hospitalization, Other)
  Sender: DR REDDYS
  Company Number: None

PATIENT
  Age: 44 Year
  Sex: Male
  Weight: 74 kg

DRUGS (7)
  1. LACOSAMIDE [Suspect]
     Active Substance: LACOSAMIDE
     Indication: Epilepsy
     Dosage: UNK
  2. KEPPRA [Suspect]
     Active Substance: LEVETIRACETAM
     Indication: Epilepsy
     Dosage: UNK
  3. DEXAMETHASONE ACETATE [Suspect]
     Active Substance: DEXAMETHASONE ACETATE
     Indication: Epilepsy
     Dosage: UNK
  4. PEMAZYRE [Suspect]
     Active Substance: PEMIGATINIB
     Indication: Glioblastoma
     Dosage: 13.5 MILLIGRAM, ONCE DAILY (QD)
     Route: 048
     Dates: start: 20230928, end: 20231103
  5. PEMAZYRE [Suspect]
     Active Substance: PEMIGATINIB
     Indication: Off label use
  6. PEMAZYRE [Concomitant]
     Active Substance: PEMIGATINIB
     Indication: Glioblastoma
     Dosage: 13.5 MILLIGRAM, ONCE DAILY (QD)
     Route: 048
     Dates: start: 20230928, end: 20231103
  7. PEMAZYRE [Concomitant]
     Active Substance: PEMIGATINIB
     Indication: Off label use

REACTIONS (5)
  - Seizure [Fatal]
  - Glioblastoma [Fatal]
  - Disease progression [Fatal]
  - Drug withdrawal convulsions [Recovered/Resolved]
  - Off label use [Unknown]

NARRATIVE: CASE EVENT DATE: 20230928
